FAERS Safety Report 6323344-5 (Version None)
Quarter: 2009Q3

REPORT INFORMATION
  Report Type: 
  Country: None (occurrence: None)
  Receive Date: 20090818
  Receipt Date: 20090205
  Transmission Date: 20100115
  Serious: Yes (Hospitalization)
  Sender: FDA-Public Use
  Company Number: MEDI-0007903

PATIENT
  Age: 3 Month
  Sex: Male

DRUGS (2)
  1. SYNAGIS [Suspect]
     Indication: ANTIVIRAL PROPHYLAXIS
     Dosage: 56 MG, 1 IN 1 M, INTRAMUSCULAR; 1 IN 1M, INTRAMUSCULAR
     Route: 030
     Dates: start: 20081126, end: 20081231
  2. SYNAGIS [Suspect]
     Indication: ANTIVIRAL PROPHYLAXIS
     Dosage: 56 MG, 1 IN 1 M, INTRAMUSCULAR; 1 IN 1M, INTRAMUSCULAR
     Route: 030
     Dates: start: 20081126

REACTIONS (1)
  - RESPIRATORY SYNCYTIAL VIRUS INFECTION [None]
